FAERS Safety Report 6042393-8 (Version None)
Quarter: 2009Q1

REPORT INFORMATION
  Report Type: 
  Country: None (occurrence: None)
  Receive Date: 20090116
  Receipt Date: 20090108
  Transmission Date: 20090719
  Serious: Yes (Death, Hospitalization, Other)
  Sender: FDA-Public Use
  Company Number: US-PFIZER INC-2008157897

PATIENT
  Sex: Male
  Weight: 58.059 kg

DRUGS (1)
  1. LIPITOR [Suspect]
     Dates: start: 20020101

REACTIONS (20)
  - ANAEMIA [None]
  - ASTHENIA [None]
  - ATRIAL FIBRILLATION [None]
  - CARDIAC FAILURE CONGESTIVE [None]
  - COLON CANCER [None]
  - DEATH [None]
  - DEEP VEIN THROMBOSIS [None]
  - ELECTROCARDIOGRAM CHANGE [None]
  - FAILURE TO THRIVE [None]
  - HEART VALVE INCOMPETENCE [None]
  - ILL-DEFINED DISORDER [None]
  - PNEUMONIA [None]
  - PRODUCTIVE COUGH [None]
  - PULMONARY HYPERTENSION [None]
  - PULMONARY OEDEMA [None]
  - PYREXIA [None]
  - SMALL INTESTINAL OBSTRUCTION [None]
  - SPLENOMEGALY [None]
  - TROPONIN INCREASED [None]
  - WEIGHT DECREASED [None]
